FAERS Safety Report 9791987 (Version 3)
Quarter: 2014Q1

REPORT INFORMATION
  Report Type: Spontaneous
  Country: FR (occurrence: FR)
  Receive Date: 20140102
  Receipt Date: 20140211
  Transmission Date: 20141002
  Serious: Yes (Hospitalization, Other)
  Sender: FDA-Public Use
  Company Number: FR-UCBSA-106955

PATIENT
  Age: 52 Year
  Sex: Female

DRUGS (16)
  1. KEPPRA [Suspect]
     Route: 048
     Dates: start: 20131025, end: 20131204
  2. HUMIRA [Suspect]
     Route: 058
     Dates: start: 20130910, end: 2013
  3. HUMIRA [Suspect]
     Route: 058
     Dates: start: 201310, end: 2013
  4. LYRICA [Suspect]
     Route: 048
     Dates: start: 20131023, end: 20131204
  5. INEXIUM [Suspect]
     Dosage: UNKNOWN
     Route: 048
     Dates: start: 201203, end: 20131204
  6. BILASKA [Suspect]
     Dosage: 20 MG TABLET
     Route: 048
     Dates: end: 20131204
  7. PAROXETIN BASE [Concomitant]
     Dosage: UNKNOWN
     Route: 048
  8. METHOTREXATE [Concomitant]
     Dosage: CHRONO-INDOCID
     Route: 048
     Dates: end: 20131115
  9. BISOPROLOL [Concomitant]
     Dosage: UNKNOWN
     Route: 048
  10. LUTERAN [Concomitant]
     Route: 048
     Dates: start: 201303, end: 20131120
  11. PIASCLEDINE [Concomitant]
     Dosage: UNKNOWN
     Route: 048
     Dates: start: 201203, end: 20131125
  12. CHRONO INDOCID [Concomitant]
     Indication: SPONDYLOARTHROPATHY
     Route: 048
     Dates: start: 20130910, end: 20131125
  13. SEVREDOL [Concomitant]
     Dates: start: 20131023
  14. MOSCONTIN [Concomitant]
     Dates: start: 201307, end: 201310
  15. SKENAN [Concomitant]
     Dates: start: 201307, end: 201310
  16. INDOCID [Concomitant]
     Dosage: UNKNOWN

REACTIONS (1)
  - Thrombocytopenia [Recovered/Resolved]
